FAERS Safety Report 4727451-X (Version None)
Quarter: 2005Q3

REPORT INFORMATION
  Report Type: 
  Country: None (occurrence: None)
  Receive Date: 20050728
  Receipt Date: 20050426
  Transmission Date: 20060218
  Serious: Yes (Hospitalization)
  Sender: FDA-Public Use
  Company Number: US-ROCHE-402956

PATIENT
  Age: 29 Year
  Sex: Male
  Weight: 54.4 kg

DRUGS (6)
  1. CAPECITABINE [Suspect]
     Indication: COLORECTAL CANCER METASTATIC
     Dosage: GIVEN FOR FIVE DAYS EACH WEEK.
     Route: 048
     Dates: start: 20040716
  2. BEVACIZUMAB [Suspect]
     Indication: COLORECTAL CANCER METASTATIC
     Route: 042
     Dates: start: 20040716
  3. OXALIPLATIN [Suspect]
     Indication: COLORECTAL CANCER METASTATIC
     Route: 042
     Dates: start: 20040716
  4. ZOFRAN [Concomitant]
  5. OXYCODONE HCL [Concomitant]
  6. COLACE [Concomitant]

REACTIONS (2)
  - PERITONEAL CARCINOMA [None]
  - SMALL INTESTINAL OBSTRUCTION [None]
